FAERS Safety Report 14563517 (Version 1)
Quarter: 2018Q1

REPORT INFORMATION
  Report Type: Spontaneous
  Country: US (occurrence: US)
  Receive Date: 20180222
  Receipt Date: 20180222
  Transmission Date: 20180509
  Serious: No
  Sender: FDA-Public Use
  Company Number: None

PATIENT

DRUGS (2)
  1. 5-FU [Suspect]
     Active Substance: FLUOROURACIL
  2. DOSI-FUSER [Suspect]
     Active Substance: DEVICE

REACTIONS (2)
  - Device infusion issue [None]
  - Incorrect drug administration rate [None]
